FAERS Safety Report 9664990 (Version 1)
Quarter: 2013Q4

REPORT INFORMATION
  Report Type: Spontaneous
  Country: AR (occurrence: AR)
  Receive Date: 20131101
  Receipt Date: 20131101
  Transmission Date: 20140711
  Serious: Yes (Hospitalization)
  Sender: FDA-Public Use
  Company Number: AR-ROXANE LABORATORIES, INC.-2013-RO-01749RO

PATIENT
  Age: 84 Year
  Sex: Female

DRUGS (3)
  1. LITHIUM CARBONATE [Suspect]
     Indication: BIPOLAR DISORDER
     Dosage: 600 MG
  2. AMLODIPINE [Suspect]
     Indication: HYPERTENSION
     Dosage: 10 MG
  3. EZETIMIBE [Suspect]
     Indication: DYSLIPIDAEMIA
     Dosage: 10 MG

REACTIONS (3)
  - Aphasia [Recovered/Resolved]
  - Nephrogenic diabetes insipidus [Unknown]
  - Hypernatraemia [Recovered/Resolved]
